FAERS Safety Report 9437213 (Version 1)
Quarter: 2013Q3

REPORT INFORMATION
  Report Type: Report from Study
  Country: BR (occurrence: BR)
  Receive Date: 20130802
  Receipt Date: 20130802
  Transmission Date: 20140515
  Serious: Yes (Other)
  Sender: FDA-Public Use
  Company Number: PHHY2013BR081904

PATIENT
  Sex: Male
  Weight: 88 kg

DRUGS (7)
  1. FORASEQ [Suspect]
     Indication: BRONCHITIS
     Dosage: TID
     Dates: start: 201211
  2. FORASEQ [Suspect]
     Indication: OFF LABEL USE
  3. PURAN T4 [Concomitant]
     Indication: THYROID DISORDER
     Dosage: UNK
  4. METFORMIN [Concomitant]
     Indication: DIABETES MELLITUS
     Dosage: UNK
  5. LOSARTAN [Concomitant]
     Indication: BLOOD PRESSURE
     Dosage: 50 MG, UNK
  6. CARVEDIOL [Concomitant]
     Indication: CARDIAC DISORDER
     Dosage: 12.5 MG, UNK
     Dates: start: 201207
  7. GLIMEPRID [Concomitant]
     Indication: DIABETES MELLITUS
     Dosage: UNK

REACTIONS (5)
  - Hearing impaired [Recovering/Resolving]
  - Lung disorder [Recovering/Resolving]
  - Infection [Recovering/Resolving]
  - Influenza [Recovering/Resolving]
  - Cough [Recovering/Resolving]
